FAERS Safety Report 14719897 (Version 1)
Quarter: 2018Q2

REPORT INFORMATION
  Report Type: Spontaneous
  Country: FR (occurrence: FR)
  Receive Date: 20180405
  Receipt Date: 20180405
  Transmission Date: 20180711
  Serious: Yes (Other)
  Sender: FDA-Public Use
  Company Number: FR-CIPLA LTD.-2018FR13834

PATIENT

DRUGS (5)
  1. APREPITANT. [Suspect]
     Active Substance: APREPITANT
     Indication: ANTIEMETIC SUPPORTIVE CARE
     Dosage: 125 MG, UNK
     Route: 048
     Dates: start: 20180208
  2. PREDNISONE. [Suspect]
     Active Substance: PREDNISONE
     Indication: ANTIEMETIC SUPPORTIVE CARE
     Dosage: 4 DF PER DAY
     Route: 048
     Dates: start: 20180208
  3. ONDANSETRON [Suspect]
     Active Substance: ONDANSETRON
     Indication: ANTIEMETIC SUPPORTIVE CARE
     Dosage: 2 DF PER DAY
     Route: 048
     Dates: start: 20180208, end: 20180208
  4. OXALIPLATIN. [Suspect]
     Active Substance: OXALIPLATIN
     Indication: MALIGNANT PERITONEAL NEOPLASM
     Dosage: 217 MG, UNK
     Route: 042
     Dates: start: 20180208
  5. TOMUDEX                            /01320701/ [Suspect]
     Active Substance: RALTITREXED
     Indication: MALIGNANT PERITONEAL NEOPLASM
     Dosage: 5 MG, UNK
     Route: 040
     Dates: start: 20180208, end: 20180208

REACTIONS (3)
  - Hot flush [Recovered/Resolved]
  - Feeling abnormal [Recovered/Resolved]
  - Hypotension [Recovered/Resolved]

NARRATIVE: CASE EVENT DATE: 20180208
